FAERS Safety Report 4773080-1 (Version None)
Quarter: 2005Q3

REPORT INFORMATION
  Report Type: 
  Country: None (occurrence: None)
  Receive Date: 20050919
  Receipt Date: 20040915
  Transmission Date: 20060218
  Serious: Yes (Hospitalization)
  Sender: FDA-Public Use
  Company Number: PHHO2004ES12886

PATIENT
  Age: 48 Year
  Sex: Female
  Weight: 91 kg

DRUGS (6)
  1. NEORAL [Suspect]
     Indication: RENAL TRANSPLANT
     Dosage: 600 MG/DAILY
     Route: 048
     Dates: start: 20040824, end: 20040902
  2. OMEPRAZOLE [Concomitant]
  3. SEPTRA [Concomitant]
  4. RENAGEL [Concomitant]
  5. PREDNISONE [Concomitant]
  6. CELLCEPT [Concomitant]

REACTIONS (6)
  - ABDOMINAL PAIN LOWER [None]
  - GENERAL PHYSICAL HEALTH DETERIORATION [None]
  - HAEMATURIA [None]
  - NEPHRECTOMY [None]
  - RENAL VEIN THROMBOSIS [None]
  - TRANSPLANT REJECTION [None]
